FAERS Safety Report 6722394-4 (Version None)
Quarter: 2010Q2

REPORT INFORMATION
  Report Type: 
  Country: None (occurrence: None)
  Receive Date: 20100512
  Receipt Date: 20100505
  Transmission Date: 20101027
  Serious: Yes (Other)
  Sender: FDA-Public Use
  Company Number: DE-PFIZER INC-2010056371

PATIENT
  Sex: Female

DRUGS (2)
  1. AROMASIN [Suspect]
     Dosage: UNK
  2. ZOMETA [Concomitant]

REACTIONS (3)
  - BLOOD GLUCOSE INCREASED [None]
  - OEDEMA [None]
  - TUMOUR MARKER INCREASED [None]
